FAERS Safety Report 6152326-1 (Version None)
Quarter: 2009Q2

REPORT INFORMATION
  Report Type: 
  Country: None (occurrence: None)
  Receive Date: 20090413
  Receipt Date: 20070517
  Transmission Date: 20091009
  Serious: Yes (Hospitalization)
  Sender: FDA-Public Use
  Company Number: US-ASTRAZENECA-2006UW04341

PATIENT
  Age: 11861 Day
  Sex: Male
  Weight: 122.5 kg

DRUGS (26)
  1. SEROQUEL [Suspect]
     Indication: BIPOLAR DISORDER
     Dosage: 100 MG TO 300 MG
     Route: 048
     Dates: start: 20000101, end: 20060101
  2. SEROQUEL [Suspect]
     Indication: DEPRESSION
     Dosage: 100 MG TO 300 MG
     Route: 048
     Dates: start: 20000101, end: 20060101
  3. SEROQUEL [Suspect]
     Indication: ANXIETY
     Dosage: 100 MG TO 300 MG
     Route: 048
     Dates: start: 20000101, end: 20060101
  4. SEROQUEL [Suspect]
     Indication: SLEEP DISORDER
     Dosage: 100 MG TO 300 MG
     Route: 048
     Dates: start: 20000101, end: 20060101
  5. SEROQUEL [Suspect]
     Dosage: 25 MG TO 300 MG
     Route: 048
     Dates: start: 20000621, end: 20060424
  6. SEROQUEL [Suspect]
     Dosage: 25 MG TO 300 MG
     Route: 048
     Dates: start: 20000621, end: 20060424
  7. SEROQUEL [Suspect]
     Dosage: 25 MG TO 300 MG
     Route: 048
     Dates: start: 20000621, end: 20060424
  8. SEROQUEL [Suspect]
     Dosage: 25 MG TO 300 MG
     Route: 048
     Dates: start: 20000621, end: 20060424
  9. HALDOL [Concomitant]
     Dates: start: 19920101
  10. RESTORIL [Concomitant]
  11. TRICOR [Concomitant]
  12. FLEXERIL [Concomitant]
  13. DARVOCET-N 100 [Concomitant]
  14. LIPITOR [Concomitant]
  15. LISINOPRIL [Concomitant]
  16. GLUCOPHAGE [Concomitant]
  17. AVANDIA [Concomitant]
  18. LYRICA [Concomitant]
  19. NEXIUM [Concomitant]
  20. AMARYL [Concomitant]
  21. CELEXA [Concomitant]
  22. XANAX [Concomitant]
  23. NEURONTIN [Concomitant]
  24. BACLOFEN [Concomitant]
  25. KLONOPIN [Concomitant]
  26. PROVACID [Concomitant]

REACTIONS (27)
  - ABDOMINAL PAIN [None]
  - ABDOMINAL PAIN UPPER [None]
  - ANXIETY DISORDER [None]
  - ARTHRALGIA [None]
  - BACK PAIN [None]
  - BRONCHITIS CHRONIC [None]
  - COSTOCHONDRITIS [None]
  - CYST [None]
  - DEPRESSION [None]
  - DIABETES MELLITUS [None]
  - DYSPEPSIA [None]
  - GASTROENTERITIS [None]
  - GASTROOESOPHAGEAL REFLUX DISEASE [None]
  - GROIN ABSCESS [None]
  - HEADACHE [None]
  - MAJOR DEPRESSION [None]
  - MUSCLE SPASMS [None]
  - NICOTINE DEPENDENCE [None]
  - PAIN IN EXTREMITY [None]
  - PANCREATITIS [None]
  - PARONYCHIA [None]
  - PERSONALITY DISORDER [None]
  - PLANTAR FASCIITIS [None]
  - PLEURISY [None]
  - PRURITUS [None]
  - RADICULOPATHY [None]
  - TOBACCO ABUSE [None]
